FAERS Safety Report 25408312 (Version 2)
Quarter: 2025Q3

REPORT INFORMATION
  Report Type: Spontaneous
  Country: US (occurrence: US)
  Receive Date: 20250606
  Receipt Date: 20250706
  Transmission Date: 20251021
  Serious: No
  Sender: SANOFI AVENTIS
  Company Number: US-SA-2025SA161312

PATIENT
  Age: 10 Year
  Sex: Male
  Weight: 31.82 kg

DRUGS (2)
  1. FABRAZYME [Suspect]
     Active Substance: AGALSIDASE BETA
     Indication: Fabry^s disease
     Dosage: 30 MG, QOW
     Route: 042
     Dates: start: 202211
  2. EPINEPHRINE [Concomitant]
     Active Substance: EPINEPHRINE

REACTIONS (1)
  - Weight increased [Not Recovered/Not Resolved]

NARRATIVE: CASE EVENT DATE: 20250604
